FAERS Safety Report 6894856-0 (Version None)
Quarter: 2010Q3

REPORT INFORMATION
  Report Type: 
  Country: None (occurrence: None)
  Receive Date: 20100802
  Receipt Date: 20100719
  Transmission Date: 20110219
  Serious: Yes (Hospitalization)
  Sender: FDA-Public Use
  Company Number: TR-ELI_LILLY_AND_COMPANY-TR201007004222

PATIENT
  Sex: Female
  Weight: 3.9 kg

DRUGS (2)
  1. HUMULIN R [Suspect]
     Indication: GESTATIONAL DIABETES
     Dosage: 4 U, 3/D
     Route: 064
     Dates: start: 20100501, end: 20100613
  2. HUMULIN N [Suspect]
     Indication: GESTATIONAL DIABETES
     Dosage: 5 U, DAILY (1/D)
     Route: 064
     Dates: start: 20100501, end: 20100613

REACTIONS (2)
  - DRUG EXPOSURE DURING PREGNANCY [None]
  - RESPIRATORY DISORDER NEONATAL [None]
